FAERS Safety Report 11977046 (Version 1)
Quarter: 2016Q1

REPORT INFORMATION
  Report Type: Spontaneous
  Country: US (occurrence: None)
  Receive Date: 20160128
  Receipt Date: 20160128
  Transmission Date: 20160526
  Serious: Yes (Other)
  Sender: FDA-Public Use
  Company Number: None

PATIENT
  Age: 44 Year
  Sex: Male
  Weight: 85 kg

DRUGS (2)
  1. TIGECYCLINE 50 MG PFIEZER [Suspect]
     Active Substance: TIGECYCLINE
     Indication: ENTEROBACTER BACTERAEMIA
     Route: 042
     Dates: start: 20150114, end: 20150123
  2. CEFTAZIDIME/AVIBACTAM 2.5 G ASTRA ZENECA [Suspect]
     Active Substance: AVIBACTAM SODIUM\CEFTAZIDIME
     Indication: ENTEROBACTER BACTERAEMIA
     Route: 042
     Dates: start: 20150123

REACTIONS (3)
  - Bile duct obstruction [None]
  - Alanine aminotransferase increased [None]
  - Aspartate aminotransferase increased [None]

NARRATIVE: CASE EVENT DATE: 20150123
